FAERS Safety Report 6330094-8 (Version None)
Quarter: 2009Q3

REPORT INFORMATION
  Report Type: 
  Country: None (occurrence: None)
  Receive Date: 20090827
  Receipt Date: 20090818
  Transmission Date: 20100115
  Serious: Yes (Other)
  Sender: FDA-Public Use
  Company Number: AU-BIOGENIDEC-2009BI017933

PATIENT
  Age: 42 Year
  Sex: Female
  Weight: 55 kg

DRUGS (3)
  1. TYSABRI [Suspect]
     Indication: MULTIPLE SCLEROSIS
     Route: 042
     Dates: start: 20060801
  2. TYSABRI [Suspect]
     Route: 042
  3. PREDNISONE TAB [Concomitant]

REACTIONS (3)
  - CYCLITIS [None]
  - HYPOPYON [None]
  - UVEITIS [None]
